FAERS Safety Report 9026526 (Version 1)
Quarter: 2012Q4

REPORT INFORMATION
  Report Type: Spontaneous
  Country: US (occurrence: None)
  Receive Date: 20121214
  Receipt Date: 20121214
  Transmission Date: 20130627
  Serious: Yes (Hospitalization)
  Sender: FDA-Public Use
  Company Number: None

PATIENT
  Sex: Female

DRUGS (2)
  1. RIBAVIRIN [Suspect]
     Indication: HEPATITIS C
     Route: 048
     Dates: start: 20121120
  2. PEGASYS [Suspect]
     Indication: HEPATITIS C
     Dosage: 180mcg qw sq
     Route: 058
     Dates: start: 20121120

REACTIONS (2)
  - Convulsion [None]
  - Rash [None]
